FAERS Safety Report 9169534 (Version 1)
Quarter: 2013Q1

REPORT INFORMATION
  Report Type: Spontaneous
  Country: IT (occurrence: IT)
  Receive Date: 20130318
  Receipt Date: 20130318
  Transmission Date: 20140127
  Serious: Yes (Hospitalization)
  Sender: FDA-Public Use
  Company Number: IT-MYLANLABS-2013S1005266

PATIENT
  Sex: Male

DRUGS (2)
  1. ENALAPRIL [Suspect]
     Indication: PRODUCT USED FOR UNKNOWN INDICATION
  2. FUROSEMIDE [Suspect]
     Indication: PRODUCT USED FOR UNKNOWN INDICATION

REACTIONS (6)
  - Dehydration [Recovered/Resolved]
  - Dyspnoea [Recovered/Resolved]
  - Haemoconcentration [Recovered/Resolved]
  - Hyponatraemia [Recovered/Resolved]
  - Hypotension [Recovered/Resolved]
  - Cardioactive drug level increased [Recovered/Resolved]
